FAERS Safety Report 8097175 (Version 2)
Quarter: 2012Q4

REPORT INFORMATION
  Report Type: 
  Country: CH (occurrence: CH)
  Receive Date: 20110819
  Receipt Date: 20120913
  Transmission Date: 20130627
  Serious: Yes (Death, Hospitalization, Other)
  Sender: FDA-Public Use
  Company Number: CH-RANBAXY-2011R1-46917

PATIENT
  Age: 78 Year
  Sex: Male

DRUGS (1)
  1. CLINDAMYCIN [Suspect]
     Indication: DENTAL IMPLANTATION
     Dosage: UNK
     Route: 048

REACTIONS (3)
  - Aspiration [Recovered/Resolved]
  - Tracheitis [Recovered/Resolved]
  - Syncope [Recovered/Resolved]
